FAERS Safety Report 6845730-7 (Version None)
Quarter: 2010Q3

REPORT INFORMATION
  Report Type: 
  Country: None (occurrence: None)
  Receive Date: 20100715
  Receipt Date: 20100121
  Transmission Date: 20110219
  Serious: No
  Sender: FDA-Public Use
  Company Number: US-PFIZER INC-2007070644

PATIENT
  Sex: Female
  Weight: 90.703 kg

DRUGS (4)
  1. CHANTIX [Suspect]
     Indication: SMOKING CESSATION THERAPY
     Dosage: 0.5 MG, 1X/DAY
     Route: 048
     Dates: start: 20070820
  2. BUSPIRONE [Concomitant]
  3. GEODON [Concomitant]
  4. VALTREX [Concomitant]

REACTIONS (15)
  - ABNORMAL DREAMS [None]
  - DIZZINESS [None]
  - DRUG INEFFECTIVE [None]
  - DYSGEUSIA [None]
  - EMOTIONAL DISORDER [None]
  - FORMICATION [None]
  - FRUSTRATION [None]
  - INCREASED APPETITE [None]
  - NERVOUSNESS [None]
  - OEDEMA PERIPHERAL [None]
  - PANIC REACTION [None]
  - RESTLESSNESS [None]
  - TOBACCO USER [None]
  - TOBACCO WITHDRAWAL SYMPTOMS [None]
  - WEIGHT INCREASED [None]
